FAERS Safety Report 13882421 (Version 1)
Quarter: 2017Q3

REPORT INFORMATION
  Report Type: Spontaneous
  Country: NL (occurrence: NL)
  Receive Date: 20170818
  Receipt Date: 20170818
  Transmission Date: 20171127
  Serious: Yes (Death, Hospitalization)
  Sender: FDA-Public Use
  Company Number: NL-TEVA-797016ROM

PATIENT
  Age: 55 Year
  Sex: Female

DRUGS (5)
  1. NIFEDIPINE. [Suspect]
     Active Substance: NIFEDIPINE
     Indication: OVERDOSE
     Dosage: 200MG TOTAL
     Route: 065
  2. PARACETAMOL [Suspect]
     Active Substance: ACETAMINOPHEN
     Indication: OVERDOSE
     Dosage: 10G TOTAL
     Route: 065
  3. LORAZEPAM. [Suspect]
     Active Substance: LORAZEPAM
     Indication: OVERDOSE
     Dosage: 180MG TOTAL
     Route: 065
  4. OLANZAPINE. [Suspect]
     Active Substance: OLANZAPINE
     Indication: OVERDOSE
     Dosage: 65MG TOTAL
     Route: 065
  5. SERTRALINE [Suspect]
     Active Substance: SERTRALINE HYDROCHLORIDE
     Indication: OVERDOSE
     Dosage: 4600MG TOTAL
     Route: 065

REACTIONS (8)
  - Shock [Fatal]
  - Overdose [Fatal]
  - Renal failure [Fatal]
  - Toxicity to various agents [Fatal]
  - Hepatic failure [Fatal]
  - Acute respiratory distress syndrome [Fatal]
  - Serotonin syndrome [Fatal]
  - Multiple organ dysfunction syndrome [Fatal]
